FAERS Safety Report 8514375-5 (Version None)
Quarter: 2012Q3

REPORT INFORMATION
  Report Type: 
  Country: None (occurrence: None)
  Receive Date: 20120717
  Receipt Date: 20120709
  Transmission Date: 20120928
  Serious: Yes (Hospitalization)
  Sender: FDA-Public Use
  Company Number: US-JNJFOC-20120704320

PATIENT
  Sex: Female
  Weight: 72.58 kg

DRUGS (13)
  1. NUCYNTA [Suspect]
     Indication: PROCEDURAL PAIN
     Dosage: TWICE DAILY
     Route: 048
     Dates: start: 20120706
  2. NUCYNTA [Suspect]
     Dosage: TWICE DAILY
     Route: 048
     Dates: start: 20120706
  3. VICODIN [Suspect]
     Indication: PROCEDURAL PAIN
     Route: 048
     Dates: start: 20120615, end: 20120617
  4. NUCYNTA [Suspect]
     Dosage: 3 TIMES DAILY
     Route: 048
     Dates: start: 20120615, end: 20120619
  5. NUCYNTA [Suspect]
     Dosage: TWICE DAILY
     Route: 048
     Dates: start: 20120301, end: 20120619
  6. PERCOCET [Suspect]
     Indication: PROCEDURAL PAIN
     Dosage: 7.5/325  7.5MG ONCE DAILY AT NIGHT
     Route: 048
     Dates: start: 20120617, end: 20120619
  7. TOPIRAMATE [Concomitant]
     Indication: NERVOUS SYSTEM DISORDER
     Route: 048
     Dates: start: 20120101
  8. MORPHINE [Suspect]
     Indication: PROCEDURAL PAIN
     Route: 042
     Dates: start: 20120614, end: 20120615
  9. OXYCODONE HCL AND ACETAMINOPHEN [Suspect]
     Indication: PROCEDURAL PAIN
     Dosage: 5/325MG DAILY AS NEEDED
     Route: 048
     Dates: start: 20120615, end: 20120619
  10. CELEXA [Concomitant]
     Indication: DEPRESSION
     Route: 048
     Dates: start: 20020101
  11. NUCYNTA [Suspect]
     Indication: NEURALGIA
     Dosage: 3 TIMES DAILY
     Route: 048
     Dates: start: 20120615, end: 20120619
  12. NUCYNTA [Suspect]
     Dosage: TWICE DAILY
     Route: 048
     Dates: start: 20120301, end: 20120619
  13. XANAX [Concomitant]
     Indication: ANXIETY
     Route: 048
     Dates: start: 20020101

REACTIONS (4)
  - SPINAL FUSION SURGERY [None]
  - DELUSION [None]
  - URINARY TRACT INFECTION [None]
  - HALLUCINATION [None]
